FAERS Safety Report 21904322 (Version 1)
Quarter: 2023Q1

REPORT INFORMATION
  Report Type: Spontaneous
  Country: US (occurrence: None)
  Receive Date: 20230124
  Receipt Date: 20230124
  Transmission Date: 20230417
  Serious: No
  Sender: FDA-Public Use
  Company Number: None

PATIENT
  Sex: Male
  Weight: 99.3 kg

DRUGS (2)
  1. DARATUMUMAB\HYALURONIDASE-FIHJ [Suspect]
     Active Substance: DARATUMUMAB\HYALURONIDASE-FIHJ
     Dates: end: 20221219
  2. LENALIDOMIDE [Suspect]
     Active Substance: LENALIDOMIDE
     Dates: end: 20221226

REACTIONS (7)
  - Hyperhidrosis [None]
  - Flushing [None]
  - Palpitations [None]
  - Heart rate increased [None]
  - Tachycardia [None]
  - Electrocardiogram QRS complex shortened [None]
  - Dizziness [None]

NARRATIVE: CASE EVENT DATE: 20230110
